FAERS Safety Report 9112476 (Version 1)
Quarter: 2013Q1

REPORT INFORMATION
  Report Type: Spontaneous
  Country: US (occurrence: US)
  Receive Date: 20130211
  Receipt Date: 20130211
  Transmission Date: 20140127
  Serious: No
  Sender: FDA-Public Use
  Company Number: US-009507513-1302USA003080

PATIENT
  Sex: Male

DRUGS (3)
  1. DR. SCHOLL^S INGROWN TOENAIL PAIN RELIEVER [Suspect]
     Indication: PAIN IN EXTREMITY
     Dosage: UNK, UNKNOWN
     Route: 061
  2. DR. SCHOLL^S INGROWN TOENAIL PAIN RELIEVER [Suspect]
     Indication: INGROWING NAIL
  3. DR. SCHOLL^S INGROWN TOENAIL PAIN RELIEVER [Suspect]
     Indication: LIMB DISCOMFORT

REACTIONS (2)
  - Pain [Unknown]
  - Drug ineffective [Unknown]
